FAERS Safety Report 7573143-1 (Version None)
Quarter: 2011Q2

REPORT INFORMATION
  Report Type: 
  Country: None (occurrence: None)
  Receive Date: 20110627
  Receipt Date: 20110621
  Transmission Date: 20111010
  Serious: Yes (Death)
  Sender: FDA-Public Use
  Company Number: BR-JNJFOC-20110610944

PATIENT
  Age: 55 Year
  Sex: Male

DRUGS (2)
  1. HALDOL [Suspect]
     Indication: MULTIMORBIDITY
     Route: 065
  2. UNKNOWN MULTIPLE MEDICATION [Suspect]
     Indication: MULTIMORBIDITY
     Route: 065

REACTIONS (1)
  - RENAL FAILURE CHRONIC [None]
